FAERS Safety Report 25651463 (Version 1)
Quarter: 2025Q3

REPORT INFORMATION
  Report Type: Spontaneous
  Country: CN (occurrence: CN)
  Receive Date: 20250806
  Receipt Date: 20250806
  Transmission Date: 20251021
  Serious: Yes (Other)
  Sender: ANI
  Company Number: CN-ANIPHARMA-2025-CN-000170

PATIENT
  Sex: Male

DRUGS (4)
  1. CASODEX [Suspect]
     Active Substance: BICALUTAMIDE
     Indication: Product used for unknown indication
  2. ZOLADEX [Suspect]
     Active Substance: GOSERELIN ACETATE
  3. DEVICE [Suspect]
     Active Substance: DEVICE
  4. FLUTAMIDE [Concomitant]
     Active Substance: FLUTAMIDE

REACTIONS (8)
  - Myocardial infarction [Unknown]
  - Hepatic function abnormal [Unknown]
  - Creatinine renal clearance abnormal [Unknown]
  - Glomerular filtration rate abnormal [Unknown]
  - Prostatic specific antigen increased [Unknown]
  - Oedema peripheral [Unknown]
  - Asthenia [Unknown]
  - Therapeutic product effect incomplete [Unknown]
